FAERS Safety Report 7268375-6 (Version None)
Quarter: 2011Q1

REPORT INFORMATION
  Report Type: 
  Country: None (occurrence: None)
  Receive Date: 20110201
  Receipt Date: 20110124
  Transmission Date: 20110831
  Serious: Yes (Hospitalization)
  Sender: FDA-Public Use
  Company Number: US-JNJFOC-20110106619

PATIENT
  Age: 3 Year
  Sex: Male

DRUGS (2)
  1. TYLENOL-500 [Suspect]
  2. TYLENOL-500 [Suspect]
     Indication: ACCIDENTAL EXPOSURE

REACTIONS (5)
  - ACCIDENTAL DRUG INTAKE BY CHILD [None]
  - ABDOMINAL PAIN UPPER [None]
  - VOMITING [None]
  - ACCIDENTAL OVERDOSE [None]
  - FATIGUE [None]
